FAERS Safety Report 6218779-5 (Version None)
Quarter: 2009Q2

REPORT INFORMATION
  Report Type: 
  Country: None (occurrence: None)
  Receive Date: 20090608
  Receipt Date: 20090525
  Transmission Date: 20091009
  Serious: Yes (Hospitalization)
  Sender: FDA-Public Use
  Company Number: FR-ELI_LILLY_AND_COMPANY-FR200905004699

PATIENT
  Sex: Female

DRUGS (17)
  1. ZYPREXA [Suspect]
     Dosage: UNK, UNK
     Route: 048
     Dates: end: 20090408
  2. FLUOXETINE HYDROCHLORIDE [Concomitant]
     Dosage: UNK, UNK
     Route: 048
     Dates: end: 20090408
  3. NOCTAMIDE [Concomitant]
     Dosage: UNK, UNK
     Route: 048
  4. LYRICA [Concomitant]
     Route: 048
  5. IRBESARTAN [Concomitant]
     Dosage: UNK, UNK
  6. DIAMICRON [Concomitant]
     Dosage: UNK, UNK
  7. GLUCOPHAGE [Concomitant]
     Dosage: UNK, UNK
  8. PLAVIX [Concomitant]
     Dosage: UNK, UNK
  9. FLECAINIDE ACETATE [Concomitant]
     Dosage: UNK, UNK
  10. NEO-MERCAZOLE TAB [Concomitant]
     Dosage: UNK, UNK
  11. NEXIUM [Concomitant]
     Dosage: UNK, UNK
  12. TRIMEBUTINE [Concomitant]
     Dosage: UNK, UNK
  13. TARDYFERON [Concomitant]
     Dosage: UNK, UNK
  14. FUROSEMIDE [Concomitant]
     Dosage: UNK, UNK
  15. SMECTA /00837601/ [Concomitant]
     Dosage: UNK, UNK
  16. DOLIPRANE [Concomitant]
     Dosage: UNK, UNK
  17. DIGOXIN [Concomitant]

REACTIONS (2)
  - GENERAL PHYSICAL HEALTH DETERIORATION [None]
  - SOMNOLENCE [None]
